FAERS Safety Report 6788345-1 (Version None)
Quarter: 2010Q2

REPORT INFORMATION
  Report Type: 
  Country: None (occurrence: None)
  Receive Date: 20100621
  Receipt Date: 20100525
  Transmission Date: 20101027
  Serious: Yes (Hospitalization)
  Sender: FDA-Public Use
  Company Number: US-000257

PATIENT
  Sex: Male
  Weight: 78.9 kg

DRUGS (1)
  1. KUVAN [Suspect]
     Indication: PHENYLKETONURIA
     Dosage: 20 MG/KG QD ORAL
     Route: 048
     Dates: start: 20100312, end: 20100401

REACTIONS (3)
  - PLATELET COUNT INCREASED [None]
  - RESPIRATORY TRACT INFECTION [None]
  - WHITE BLOOD CELL COUNT INCREASED [None]
